FAERS Safety Report 15638308 (Version 1)
Quarter: 2018Q4

REPORT INFORMATION
  Report Type: Spontaneous
  Country: US (occurrence: US)
  Receive Date: 20181120
  Receipt Date: 20181120
  Transmission Date: 20190205
  Serious: No
  Sender: FDA-Public Use
  Company Number: US-JNJFOC-20180639347

PATIENT
  Age: 65 Year
  Sex: Male

DRUGS (7)
  1. IMBRUVICA [Concomitant]
     Active Substance: IBRUTINIB
     Indication: GRAFT VERSUS HOST DISEASE
     Route: 065
     Dates: start: 20170404, end: 20180520
  2. ALFUZOSIN [Concomitant]
     Active Substance: ALFUZOSIN
     Indication: GRAFT VERSUS HOST DISEASE
     Dates: start: 20171204, end: 20180520
  3. CIALIS [Concomitant]
     Active Substance: TADALAFIL
  4. ANDROGEL [Concomitant]
     Active Substance: TESTOSTERONE
  5. HYDROCORTISONE. [Concomitant]
     Active Substance: HYDROCORTISONE
  6. DECADRON [Concomitant]
     Active Substance: DEXAMETHASONE
  7. IMBRUVICA [Suspect]
     Active Substance: IBRUTINIB
     Indication: GRAFT VERSUS HOST DISEASE
     Route: 065
     Dates: start: 20180521, end: 201806

REACTIONS (2)
  - Muscle spasms [Not Recovered/Not Resolved]
  - Neuropathy peripheral [Not Recovered/Not Resolved]

NARRATIVE: CASE EVENT DATE: 201806
